FAERS Safety Report 19194139 (Version 1)
Quarter: 2021Q2

REPORT INFORMATION
  Report Type: Spontaneous
  Country: US (occurrence: US)
  Receive Date: 20210428
  Receipt Date: 20210428
  Transmission Date: 20210717
  Serious: No
  Sender: FDA-Public Use
  Company Number: None

PATIENT
  Age: 36 Year
  Sex: Female

DRUGS (1)
  1. DEXAMETHASONE (DEXAMETHASONE ACETATE 8MG/ML INJ, SUSP) [Suspect]
     Active Substance: DEXAMETHASONE ACETATE
     Indication: DRUG THERAPY
     Route: 042
     Dates: start: 20210224, end: 20210224

REACTIONS (4)
  - Injection site rash [None]
  - Pruritus [None]
  - Dyspnoea [None]
  - Throat tightness [None]

NARRATIVE: CASE EVENT DATE: 20210224
